FAERS Safety Report 4717095-8 (Version None)
Quarter: 2005Q3

REPORT INFORMATION
  Report Type: 
  Country: None (occurrence: None)
  Receive Date: 20050715
  Receipt Date: 20050705
  Transmission Date: 20060218
  Serious: Yes (Hospitalization, Other)
  Sender: FDA-Public Use
  Company Number: HQWYE035107JUL05

PATIENT
  Age: 12 Month

DRUGS (1)
  1. ADVIL [Suspect]
     Indication: VARICELLA
     Dosage: EVERY 6-8 HOURS WHEN REQUIRED

REACTIONS (1)
  - STREPTOCOCCAL INFECTION [None]
